FAERS Safety Report 8838523 (Version 2)
Quarter: 2012Q4

REPORT INFORMATION
  Report Type: Report from Study
  Country: US (occurrence: US)
  Receive Date: 20121012
  Receipt Date: 20121129
  Transmission Date: 20130627
  Serious: Yes (Hospitalization)
  Sender: FDA-Public Use
  Company Number: US-ABBOTT-12P-163-0990500-00

PATIENT
  Age: 53 Year
  Sex: Female
  Weight: 66.74 kg

DRUGS (8)
  1. HUMIRA [Suspect]
     Indication: PSORIASIS
     Route: 058
     Dates: start: 200806
  2. HUMIRA [Suspect]
     Route: 058
  3. HUMIRA [Suspect]
     Route: 058
     Dates: start: 20120306
  4. AMLODIPINE MESILATE [Concomitant]
     Indication: HYPERTENSION
     Dates: start: 201110
  5. OLMESARTAN MEDOXOMIL [Concomitant]
     Indication: HYPERTENSION
     Dates: start: 201110
  6. DIVALPROEX [Concomitant]
     Indication: CONVULSION
     Dates: start: 201201
  7. TOPAMAX [Concomitant]
     Indication: CONVULSION
     Dates: start: 2009
  8. AMITRIPTYLINE [Concomitant]
     Indication: DEPRESSION
     Dates: start: 201105

REACTIONS (1)
  - Nephrolithiasis [Recovered/Resolved]
